FAERS Safety Report 11679050 (Version 1)
Quarter: 2015Q4

REPORT INFORMATION
  Report Type: Spontaneous
  Country: US (occurrence: US)
  Receive Date: 20151028
  Receipt Date: 20151028
  Transmission Date: 20160304
  Serious: Yes (Other)
  Sender: FDA-Public Use
  Company Number: US-US WORLDMEDS, LLC-USW201510-000292

PATIENT
  Age: 73 Year
  Sex: Female
  Weight: 85.28 kg

DRUGS (10)
  1. RYTARY [Concomitant]
     Active Substance: CARBIDOPA\LEVODOPA
  2. APOKYN [Suspect]
     Active Substance: APOMORPHINE HYDROCHLORIDE
     Indication: PARKINSON^S DISEASE
     Dates: start: 201506
  3. ROPIRINOLE [Concomitant]
  4. AMANTADINE [Concomitant]
     Active Substance: AMANTADINE
  5. CLONAZEPAM. [Concomitant]
     Active Substance: CLONAZEPAM
  6. DICLOFENAC [Concomitant]
     Active Substance: DICLOFENAC
     Indication: PAIN
  7. AZILECT [Concomitant]
     Active Substance: RASAGILINE MESYLATE
  8. SERTRALINE [Concomitant]
     Active Substance: SERTRALINE HYDROCHLORIDE
  9. HCTZ [Concomitant]
     Active Substance: HYDROCHLOROTHIAZIDE
  10. SINEMET ER [Concomitant]

REACTIONS (2)
  - Skin injury [Recovering/Resolving]
  - Joint injury [Recovering/Resolving]

NARRATIVE: CASE EVENT DATE: 20151014
